FAERS Safety Report 6183205-1 (Version None)
Quarter: 2009Q2

REPORT INFORMATION
  Report Type: 
  Country: None (occurrence: None)
  Receive Date: 20090506
  Receipt Date: 20090428
  Transmission Date: 20091009
  Serious: Yes (Hospitalization)
  Sender: FDA-Public Use
  Company Number: VISP-UK-0904S-0183

PATIENT
  Age: 70 Year
  Sex: Female

DRUGS (2)
  1. VISIPAQUE [Suspect]
     Indication: PULMONARY EMBOLISM
     Dosage: 150 ML, SINGLE DOSE, I.V.
     Route: 042
     Dates: start: 20070820, end: 20070820
  2. VISIPAQUE [Suspect]

REACTIONS (4)
  - BLISTER [None]
  - EXTRAVASATION [None]
  - OEDEMA PERIPHERAL [None]
  - SKIN GRAFT [None]
